FAERS Safety Report 5812015-7 (Version None)
Quarter: 2008Q3

REPORT INFORMATION
  Report Type: 
  Country: None (occurrence: None)
  Receive Date: 20080716
  Receipt Date: 20080703
  Transmission Date: 20090109
  Serious: Yes (Hospitalization)
  Sender: FDA-Public Use
  Company Number: PHBS2008GB05073

PATIENT
  Age: 76 Year
  Sex: Female

DRUGS (3)
  1. STALEVO 100 [Suspect]
     Indication: PARKINSON'S DISEASE
     Dosage: 100 MG 5 TIMES/DAY
     Route: 065
  2. RASAGILINE [Suspect]
     Indication: PARKINSON'S DISEASE
     Dosage: 1 MG/DAY
  3. RASAGILINE [Suspect]
     Dosage: 1 MG, QID
     Route: 065

REACTIONS (11)
  - AGITATION [None]
  - CONFUSIONAL STATE [None]
  - DRUG PRESCRIBING ERROR [None]
  - KNEE ARTHROPLASTY [None]
  - MUSCLE RIGIDITY [None]
  - OVERDOSE [None]
  - PARANOIA [None]
  - PYREXIA [None]
  - SEROTONIN SYNDROME [None]
  - THERAPEUTIC RESPONSE DECREASED [None]
  - TREMOR [None]
